FAERS Safety Report 25918639 (Version 1)
Quarter: 2025Q4

REPORT INFORMATION
  Report Type: Spontaneous
  Country: US (occurrence: None)
  Receive Date: 20251010
  Receipt Date: 20251010
  Transmission Date: 20260117
  Serious: No
  Sender: FDA-CTU
  Company Number: None

PATIENT
  Age: 45 Year
  Sex: Female
  Weight: 89.55 kg

DRUGS (6)
  1. SIMPONI ARIA [Suspect]
     Active Substance: GOLIMUMAB
     Indication: Prostatic specific antigen
     Dosage: OTHER FREQUENCY : 0 DAYS, 4 WEEKS, T;?
     Route: 042
     Dates: start: 20250915, end: 20250915
  2. ATORVASTATIN [Concomitant]
     Active Substance: ATORVASTATIN
  3. IRON [Concomitant]
     Active Substance: IRON
  4. FOLIC ACID [Concomitant]
     Active Substance: FOLIC ACID
  5. LEVOTHYROXINE [Concomitant]
     Active Substance: LEVOTHYROXINE
  6. Vitamins B + D [Concomitant]

REACTIONS (14)
  - Pain in extremity [None]
  - Peripheral swelling [None]
  - Limb discomfort [None]
  - Arthralgia [None]
  - Neck pain [None]
  - Hypertension [None]
  - Anxiety [None]
  - Heart rate increased [None]
  - Dizziness [None]
  - Depression [None]
  - Insomnia [None]
  - Pain in jaw [None]
  - Arthralgia [None]
  - Back pain [None]

NARRATIVE: CASE EVENT DATE: 20250915
